FAERS Safety Report 6063799-7 (Version None)
Quarter: 2009Q1

REPORT INFORMATION
  Report Type: 
  Country: None (occurrence: None)
  Receive Date: 20090204
  Receipt Date: 20090121
  Transmission Date: 20090719
  Serious: Yes (Death)
  Sender: FDA-Public Use
  Company Number: US-JNJFOC-20090107032

PATIENT
  Sex: Female
  Weight: 62.6 kg

DRUGS (5)
  1. FENTANYL-75 [Suspect]
     Indication: DRUG USE FOR UNKNOWN INDICATION
     Route: 065
  2. MORPHINE [Suspect]
     Indication: DRUG USE FOR UNKNOWN INDICATION
  3. ATIVAN [Concomitant]
  4. LOPRESSOR [Concomitant]
  5. TAGAMET [Concomitant]

REACTIONS (2)
  - DRUG TOXICITY [None]
  - PANCREATIC CARCINOMA [None]
